FAERS Safety Report 6528104-8 (Version None)
Quarter: 2010Q1

REPORT INFORMATION
  Report Type: 
  Country: None (occurrence: None)
  Receive Date: 20100106
  Receipt Date: 20091229
  Transmission Date: 20100710
  Serious: Yes (Life-Threatening, Hospitalization, Disabling, Other)
  Sender: FDA-Public Use
  Company Number: US-ASTRAZENECA-2009SE31409

PATIENT
  Age: 20306 Day
  Sex: Female
  Weight: 101.6 kg

DRUGS (9)
  1. CRESTOR [Suspect]
     Indication: LIPIDS
     Route: 048
     Dates: start: 20090713, end: 20090904
  2. ASPIRIN [Concomitant]
  3. AMARYL [Concomitant]
     Indication: DIABETES MELLITUS
  4. BENICAR [Concomitant]
     Indication: DIABETES MELLITUS
  5. CALTRATE [Concomitant]
  6. VIT D [Concomitant]
  7. MULTIVIT [Concomitant]
  8. LIPITOR [Concomitant]
     Dates: end: 20090113
  9. METPORMINER [Concomitant]
     Indication: DIABETES MELLITUS
     Dosage: 2 GM DAILY

REACTIONS (4)
  - BLOOD CREATINE PHOSPHOKINASE [None]
  - MYOPATHY [None]
  - QUADRIPLEGIA [None]
  - RHABDOMYOLYSIS [None]
